FAERS Safety Report 20451211 (Version 1)
Quarter: 2022Q1

REPORT INFORMATION
  Report Type: Spontaneous
  Country: NO (occurrence: NO)
  Receive Date: 20220209
  Receipt Date: 20220209
  Transmission Date: 20220424
  Serious: Yes (Other)
  Sender: FDA-Public Use
  Company Number: None

PATIENT
  Age: 45 Year
  Sex: Female
  Weight: 70 kg

DRUGS (11)
  1. TOPIRAMATE [Suspect]
     Active Substance: TOPIRAMATE
     Indication: Migraine prophylaxis
     Route: 048
     Dates: start: 20211003
  2. AMITRIPTYLIN ORIFARM [Concomitant]
     Indication: Poor quality sleep
  3. AMITRIPTYLIN ORIFARM [Concomitant]
     Indication: Migraine prophylaxis
  4. AMITRIPTYLIN ORIFARM [Concomitant]
     Indication: Pain
  5. IDOFORM [Concomitant]
  6. MONTELUKAST SODIUM [Concomitant]
     Active Substance: MONTELUKAST SODIUM
     Indication: Asthma
     Dates: start: 202006
  7. BECLOMETHASONE\FORMOTEROL [Concomitant]
     Active Substance: BECLOMETHASONE\FORMOTEROL
     Indication: Asthma
     Dates: start: 202004
  8. CANDESARTAN [Concomitant]
     Active Substance: CANDESARTAN
     Indication: Hypertension
     Dates: start: 202105
  9. SUMATRIPTAN [Concomitant]
     Active Substance: SUMATRIPTAN
     Indication: Migraine
     Dosage: 2-3 TIMES A WEEK. USED WHEN HAVING A MIGRAINE ATTACK.; AS REQUIRED
     Dates: start: 202109
  10. ERGOCALCIFEROL [Concomitant]
     Active Substance: ERGOCALCIFEROL
  11. FEXOFENADINE [Concomitant]
     Active Substance: FEXOFENADINE HYDROCHLORIDE
     Indication: Hypersensitivity
     Dosage: 120 MG

REACTIONS (10)
  - Suicidal ideation [Recovering/Resolving]
  - Headache [Recovered/Resolved]
  - Crying [Unknown]
  - Mania [Unknown]
  - Sensory disturbance [Unknown]
  - Anxiety [Recovering/Resolving]
  - Tremor [Unknown]
  - Visual impairment [Recovered/Resolved]
  - Tension [Unknown]
  - Anger [Unknown]

NARRATIVE: CASE EVENT DATE: 20211001
